FAERS Safety Report 8647189 (Version 2)
Quarter: 2012Q4

REPORT INFORMATION
  Report Type: Report from Study
  Country: US (occurrence: None)
  Receive Date: 20120620
  Receipt Date: 20120820
  Transmission Date: 20130627
  Serious: Yes (Hospitalization, Other)
  Sender: FDA-Public Use
  Company Number: 1312175

PATIENT
  Age: 15 Year
  Sex: Male

DRUGS (10)
  1. METHOTREXATE SODIUM [Suspect]
     Indication: ACUTE LYMPHOCYTIC LEUKEMIA
     Route: 037
     Dates: start: 20120511, end: 20120511
  2. DASATINIB [Suspect]
     Indication: ACUTE LYMPHOCYTIC LEUKAEMIA
     Dosage: 90 MG, 1 DAY, ORAL
     Route: 048
     Dates: start: 20120206
  3. DOXORUBICIN HYDROCHLORIDE [Suspect]
     Indication: ACUTE LYMPHOCYTIC LEUKEMIA
  4. DEXAMETHASONE [Suspect]
     Indication: ACUTE LYMPHOCYTIC LEUKEMIA
  5. VINCRISTINE SULFATE [Suspect]
     Indication: ACUTE LYMPHOCYTIC LEUKEMIA
     Route: 042
     Dates: start: 20120503, end: 20120503
  6. BACTRIM [Concomitant]
  7. LORAZEPAM [Concomitant]
  8. ONDANSETRON [Concomitant]
  9. (GLUTAMIC ACID) [Concomitant]
  10. MORPHINE [Concomitant]

REACTIONS (2)
  - Febrile neutropenia [None]
  - Haemoglobin decreased [None]
